FAERS Safety Report 9122924 (Version 1)
Quarter: 2013Q1

REPORT INFORMATION
  Report Type: Spontaneous
  Country: FI (occurrence: FI)
  Receive Date: 20130115
  Receipt Date: 20130115
  Transmission Date: 20140127
  Serious: Yes (Death, Other)
  Sender: FDA-Public Use
  Company Number: FI-PFIZER INC-2013014793

PATIENT
  Age: 78 Year
  Sex: Male

DRUGS (9)
  1. CORDARONE [Suspect]
     Indication: ATRIAL FIBRILLATION
     Dosage: 200 MG DAILY
     Route: 048
     Dates: start: 20051227, end: 20121202
  2. SOMAC [Concomitant]
     Indication: DYSPEPSIA
     Dosage: 40 MG 1 TABLET ONCE A DAY
  3. MAREVAN [Concomitant]
     Indication: PROPHYLAXIS
     Dosage: 3 MG UNK
  4. PRIMASPAN [Concomitant]
     Indication: PROPHYLAXIS
     Dosage: 100 MG 1 TABLET ONCE A DAY
  5. ISANGINA [Concomitant]
     Indication: ANGINA PECTORIS
     Dosage: 25 MG 1 CAPSULE ONCE A DAY
  6. DIUREX [Concomitant]
     Indication: HYPERTENSION
     Dosage: 5 MG/ 50 MG 1 TABLET ONCE A DAY
  7. ORLOC [Concomitant]
     Indication: ARRHYTHMIA
     Dosage: 5 MG 1 TABLET TWICE A DAY
  8. LIPCUT [Concomitant]
     Indication: BLOOD CHOLESTEROL
     Dosage: 20 MG 1 TABLET ONCE A DAY
  9. PANADOL FORTE [Concomitant]
     Indication: PAIN
     Dosage: 1 G AS NEEDED

REACTIONS (3)
  - Pulmonary fibrosis [Fatal]
  - Coronary artery disease [Unknown]
  - Pulmonary embolism [Unknown]
